FAERS Safety Report 24988574 (Version 1)
Quarter: 2025Q1

REPORT INFORMATION
  Report Type: Spontaneous
  Country: US (occurrence: US)
  Receive Date: 20250220
  Receipt Date: 20250220
  Transmission Date: 20250409
  Serious: No
  Sender: BIOGEN
  Company Number: US-BIOGEN-2024BI01255117

PATIENT
  Sex: Female

DRUGS (1)
  1. VUMERITY [Suspect]
     Active Substance: DIROXIMEL FUMARATE
     Indication: Multiple sclerosis
     Route: 050
     Dates: start: 20240201

REACTIONS (2)
  - Gait disturbance [Not Recovered/Not Resolved]
  - Hot flush [Recovered/Resolved with Sequelae]

NARRATIVE: CASE EVENT DATE: 20240101
